FAERS Safety Report 6908798-5 (Version None)
Quarter: 2010Q3

REPORT INFORMATION
  Report Type: 
  Country: None (occurrence: None)
  Receive Date: 20100805
  Receipt Date: 20100729
  Transmission Date: 20110219
  Serious: Yes (Death, Hospitalization)
  Sender: FDA-Public Use
  Company Number: A0873885A

PATIENT
  Sex: Female

DRUGS (3)
  1. SERETIDE [Suspect]
     Indication: ASTHMA
     Dosage: 1PUFF AT NIGHT
     Route: 055
     Dates: start: 20060101, end: 20091213
  2. SIMVASTATIN [Concomitant]
     Dosage: 1TAB PER DAY
     Route: 048
     Dates: start: 20070101, end: 20091213
  3. MODURETIC 5-50 [Concomitant]
     Dosage: 1TAB PER DAY
     Dates: start: 20060101, end: 20091213

REACTIONS (1)
  - ISCHAEMIC STROKE [None]
